FAERS Safety Report 12705049 (Version 1)
Quarter: 2016Q3

REPORT INFORMATION
  Report Type: Spontaneous
  Country: US (occurrence: None)
  Receive Date: 20160831
  Receipt Date: 20160831
  Transmission Date: 20161109
  Serious: Yes (Hospitalization)
  Sender: FDA-Public Use
  Company Number: None

PATIENT
  Age: 52 Year
  Sex: Female
  Weight: 118 kg

DRUGS (11)
  1. PROMETHAZINE/DEXTROMETHORPHAN (PHENERGAN DM) [Concomitant]
  2. PREDNISONE. [Concomitant]
     Active Substance: PREDNISONE
  3. SUMATRIPTAN (IMITREX) [Concomitant]
  4. TAPENTADOL ER (NUCYNTA ER) [Concomitant]
  5. FLUTICASONE PROPIONATE (FLONASE) [Concomitant]
  6. ALBUTEROL HFA (PROAIR HFA) [Concomitant]
  7. METOCLOPRAMIDE (REGLAN) [Concomitant]
     Active Substance: METOCLOPRAMIDE HYDROCHLORIDE
  8. HYDROCODONE/APAP (NORCO) [Concomitant]
  9. CLONAZEPAM (KLONOPIN) [Concomitant]
  10. TOPAMAX [Concomitant]
     Active Substance: TOPIRAMATE
  11. ACTEMRA [Suspect]
     Active Substance: TOCILIZUMAB
     Indication: RHEUMATOID ARTHRITIS
     Dosage: 250 MG WEEKLY INTRAVENOUS (NOT OTHERWISE SPECIFIED)
     Route: 042

REACTIONS (5)
  - Vision blurred [None]
  - Eye pain [None]
  - Uveitis [None]
  - Headache [None]
  - Immunodeficiency [None]
